FAERS Safety Report 21791320 (Version 1)
Quarter: 2022Q4

REPORT INFORMATION
  Report Type: Spontaneous
  Country: AU (occurrence: AU)
  Receive Date: 20221228
  Receipt Date: 20221228
  Transmission Date: 20230113
  Serious: Yes (Hospitalization)
  Sender: FDA-Public Use
  Company Number: AU-TASMAN PHARMA, INC.-2022TSM00998

PATIENT
  Sex: Female
  Weight: 67.7 kg

DRUGS (27)
  1. CLOZAPINE [Suspect]
     Active Substance: CLOZAPINE
     Dosage: 12.5 MG
     Dates: start: 20201012, end: 20201020
  2. CLOZAPINE [Suspect]
     Active Substance: CLOZAPINE
     Dosage: 600 MG
     Dates: start: 20201201, end: 20201207
  3. CLOZAPINE [Suspect]
     Active Substance: CLOZAPINE
     Dosage: 650 MG
     Dates: start: 20201208, end: 20201214
  4. CLOZAPINE [Suspect]
     Active Substance: CLOZAPINE
     Dosage: 700 MG
     Dates: start: 20201215, end: 20201221
  5. CLOZAPINE [Suspect]
     Active Substance: CLOZAPINE
     Dosage: 750 MG
     Dates: start: 20201222, end: 20201228
  6. CLOZAPINE [Suspect]
     Active Substance: CLOZAPINE
     Dosage: 800 MG
     Dates: start: 20201229, end: 20210111
  7. CLOZAPINE [Suspect]
     Active Substance: CLOZAPINE
     Dosage: 850 MG
     Dates: start: 20210112, end: 20210124
  8. CLOZAPINE [Suspect]
     Active Substance: CLOZAPINE
     Dosage: 850 MG
     Dates: start: 20210216, end: 20210316
  9. CLOZAPINE [Suspect]
     Active Substance: CLOZAPINE
     Dosage: 125 MG
     Dates: start: 20201021, end: 20201026
  10. CLOZAPINE [Suspect]
     Active Substance: CLOZAPINE
     Dosage: 200 MG
     Dates: start: 20201027, end: 20201101
  11. CLOZAPINE [Suspect]
     Active Substance: CLOZAPINE
     Dosage: 250 MG
     Dates: start: 20201102, end: 20201108
  12. CLOZAPINE [Suspect]
     Active Substance: CLOZAPINE
     Dosage: 400 MG
     Dates: start: 20201109, end: 20201116
  13. CLOZAPINE [Suspect]
     Active Substance: CLOZAPINE
     Dosage: 550 MG
     Dates: start: 20201117, end: 20201130
  14. CLOZAPINE [Suspect]
     Active Substance: CLOZAPINE
     Dosage: 650 MG
     Dates: start: 20211108, end: 20220131
  15. CLOZAPINE [Suspect]
     Active Substance: CLOZAPINE
     Dosage: 600 MG
     Dates: start: 20220201, end: 20220220
  16. CLOZAPINE [Suspect]
     Active Substance: CLOZAPINE
     Dosage: 850 MG
     Dates: start: 20210125, end: 20210215
  17. CLOZAPINE [Suspect]
     Active Substance: CLOZAPINE
     Dosage: 800 MG
     Dates: start: 20210317, end: 20210415
  18. CLOZAPINE [Suspect]
     Active Substance: CLOZAPINE
     Dosage: 650 MG
     Dates: start: 20210416, end: 20211107
  19. CLOZAPINE [Suspect]
     Active Substance: CLOZAPINE
     Dosage: 600 MG
     Dates: start: 20220221, end: 20220327
  20. CLOZAPINE [Suspect]
     Active Substance: CLOZAPINE
     Dosage: 600 MG
     Dates: start: 20220328, end: 20221017
  21. CLOZAPINE [Suspect]
     Active Substance: CLOZAPINE
     Dosage: UNK
     Dates: start: 20221021, end: 20221023
  22. CLOZAPINE [Suspect]
     Active Substance: CLOZAPINE
     Dosage: 62.5 MG
     Dates: start: 20221024, end: 20221030
  23. CLOZAPINE [Suspect]
     Active Substance: CLOZAPINE
     Dosage: 87.5 MG
     Dates: start: 20221031, end: 20221106
  24. CLOZAPINE [Suspect]
     Active Substance: CLOZAPINE
     Dosage: 100 MG
     Dates: start: 20221107, end: 20221113
  25. CLOZAPINE [Suspect]
     Active Substance: CLOZAPINE
     Dosage: 125 MG
     Dates: start: 20221114, end: 20221127
  26. CLOZAPINE [Suspect]
     Active Substance: CLOZAPINE
     Dosage: 200 MG
     Dates: start: 20221128, end: 20221204
  27. CLOZAPINE [Suspect]
     Active Substance: CLOZAPINE
     Dosage: 250 MG
     Dates: start: 20221205

REACTIONS (3)
  - Hospitalisation [Unknown]
  - Treatment noncompliance [Recovered/Resolved]
  - Neutrophil count decreased [Not Recovered/Not Resolved]

NARRATIVE: CASE EVENT DATE: 20210311
